FAERS Safety Report 20161267 (Version 1)
Quarter: 2021Q4

REPORT INFORMATION
  Report Type: Spontaneous
  Country: JP (occurrence: JP)
  Receive Date: 20211208
  Receipt Date: 20211208
  Transmission Date: 20220303
  Serious: Yes (Other)
  Sender: FDA-Public Use
  Company Number: JP-Merck Healthcare KGaA-9283408

PATIENT

DRUGS (3)
  1. ERBITUX [Suspect]
     Active Substance: CETUXIMAB
     Indication: Product used for unknown indication
     Dosage: UNK, WEEKLY (1/W)
     Route: 041
  2. PEMBROLIZUMAB [Concomitant]
     Active Substance: PEMBROLIZUMAB
     Indication: Product used for unknown indication
     Dosage: UNK
  3. PACLITAXEL [Concomitant]
     Active Substance: PACLITAXEL
     Indication: Product used for unknown indication
     Dosage: UNK

REACTIONS (2)
  - Myocarditis [Unknown]
  - Off label use [Unknown]
